FAERS Safety Report 6812903-9 (Version None)
Quarter: 2010Q3

REPORT INFORMATION
  Report Type: 
  Country: None (occurrence: None)
  Receive Date: 20100701
  Receipt Date: 20100629
  Transmission Date: 20110219
  Serious: Yes (Death)
  Sender: FDA-Public Use
  Company Number: JP-SANOFI-AVENTIS-2010SA037577

PATIENT
  Sex: Male

DRUGS (12)
  1. PLAVIX [Suspect]
     Route: 048
     Dates: start: 20090717, end: 20090717
  2. PLAVIX [Suspect]
     Route: 048
     Dates: start: 20090718
  3. ASPIRIN [Concomitant]
     Indication: CEREBRAL INFARCTION
     Route: 048
     Dates: end: 20090724
  4. HEPARIN [Concomitant]
     Route: 042
     Dates: start: 20090717, end: 20090717
  5. HEPARIN [Concomitant]
     Route: 042
     Dates: start: 20090725, end: 20090725
  6. THEO-DUR [Concomitant]
     Route: 048
     Dates: end: 20090724
  7. OMEPRAL [Concomitant]
     Route: 048
     Dates: end: 20090724
  8. TIOTROPIUM BROMIDE [Concomitant]
     Route: 055
     Dates: end: 20090724
  9. ATORVASTATIN CALCIUM [Concomitant]
     Route: 048
     Dates: start: 20090718, end: 20090724
  10. RENIVACE [Concomitant]
     Route: 048
     Dates: start: 20090718, end: 20090724
  11. SIGMART [Concomitant]
     Route: 048
     Dates: start: 20090718, end: 20090724
  12. VASOLAN [Concomitant]
     Route: 048
     Dates: start: 20090718, end: 20090724

REACTIONS (2)
  - ACUTE MYOCARDIAL INFARCTION [None]
  - CARDIAC ARREST [None]
